FAERS Safety Report 17016946 (Version 2)
Quarter: 2020Q3

REPORT INFORMATION
  Report Type: Report from Study
  Country: US (occurrence: US)
  Receive Date: 20191111
  Receipt Date: 20200725
  Transmission Date: 20201102
  Serious: No
  Sender: FDA-Public Use
  Company Number: NVSC2019US030887

PATIENT
  Age: 45 Year
  Sex: Male

DRUGS (1)
  1. GILENYA [Suspect]
     Active Substance: FINGOLIMOD HYDROCHLORIDE
     Indication: MULTIPLE SCLEROSIS
     Dosage: 0.5 MG, QD
     Route: 048
     Dates: start: 20181020

REACTIONS (3)
  - Memory impairment [Unknown]
  - Sleep disorder [Unknown]
  - Migraine [Unknown]

NARRATIVE: CASE EVENT DATE: 20200722
